FAERS Safety Report 8485665-X (Version None)
Quarter: 2012Q3

REPORT INFORMATION
  Report Type: 
  Country: None (occurrence: None)
  Receive Date: 20120703
  Receipt Date: 20120627
  Transmission Date: 20120928
  Serious: Yes (Other)
  Sender: FDA-Public Use
  Company Number: CA-AMGEN-CANSP2012034622

PATIENT
  Age: 63 Year
  Sex: Male

DRUGS (3)
  1. HYDROXYCHLOROQUINE SULFATE [Concomitant]
     Dosage: UNK
     Route: 048
  2. LEFLUNOMIDE [Concomitant]
     Dosage: UNK
     Route: 048
  3. ENBREL [Suspect]
     Indication: RHEUMATOID ARTHRITIS
     Dosage: 50 MG, QWK
     Route: 058
     Dates: start: 20120501, end: 20120531

REACTIONS (4)
  - HYPOAESTHESIA [None]
  - PRURITUS [None]
  - DRUG HYPERSENSITIVITY [None]
  - RASH [None]
